FAERS Safety Report 9898041 (Version 2)
Quarter: 2014Q2

REPORT INFORMATION
  Report Type: Spontaneous
  Country: IT (occurrence: IT)
  Receive Date: 20140214
  Receipt Date: 20140416
  Transmission Date: 20141212
  Serious: Yes (Hospitalization)
  Sender: FDA-Public Use
  Company Number: IT-NOVOPROD-399834

PATIENT
  Age: 83 Year
  Sex: Male
  Weight: 47 kg

DRUGS (4)
  1. NOVORAPID FLEXPEN [Suspect]
     Indication: TYPE 2 DIABETES MELLITUS
     Dosage: 28 U, QD
     Route: 065
     Dates: start: 20120101
  2. LEVEMIR FLEXPEN [Suspect]
     Indication: TYPE 2 DIABETES MELLITUS
     Dosage: 8 U, QD
     Route: 065
     Dates: start: 20120101
  3. LASIX                              /00032601/ [Concomitant]
     Dosage: UNK (25 MG)
     Route: 065
  4. CARDIOASPIRIN [Concomitant]
     Dosage: UNK (100 MG)
     Route: 065

REACTIONS (2)
  - Aphasia [Recovered/Resolved]
  - Hypoglycaemia [Recovered/Resolved]
